FAERS Safety Report 9232893 (Version 1)
Quarter: 2013Q2

REPORT INFORMATION
  Report Type: Spontaneous
  Country: US (occurrence: None)
  Receive Date: 20130415
  Receipt Date: 20130415
  Transmission Date: 20140414
  Serious: Yes (Disabling)
  Sender: FDA-Public Use
  Company Number: None

PATIENT
  Age: 52 Year
  Sex: Male
  Weight: 86.18 kg

DRUGS (1)
  1. PROPECIA 1 MG MERCK [Suspect]
     Indication: ANDROGENETIC ALOPECIA
     Route: 048
     Dates: start: 20100101, end: 20120919

REACTIONS (8)
  - Depression [None]
  - Insomnia [None]
  - Anxiety [None]
  - Muscle atrophy [None]
  - Suicidal ideation [None]
  - Cognitive disorder [None]
  - Sexual dysfunction [None]
  - Disorientation [None]
